FAERS Safety Report 21099647 (Version 1)
Quarter: 2022Q3

REPORT INFORMATION
  Report Type: Spontaneous
  Country: US (occurrence: US)
  Receive Date: 20220719
  Receipt Date: 20220719
  Transmission Date: 20221027
  Serious: Yes (Other)
  Sender: FDA-Public Use
  Company Number: US-SA-SAC20220714000292

PATIENT
  Sex: Female
  Weight: 66 kg

DRUGS (9)
  1. KEVZARA [Suspect]
     Active Substance: SARILUMAB
     Indication: Rheumatoid arthritis
     Dosage: 200MG/1.14ML EVERY 2 WEEK
     Route: 058
     Dates: start: 20220327
  2. KEVZARA [Suspect]
     Active Substance: SARILUMAB
     Indication: Polyarthritis
  3. SULFASALAZINE [Concomitant]
     Active Substance: SULFASALAZINE
  4. ROSUVASTATIN CALCIUM [Concomitant]
     Active Substance: ROSUVASTATIN CALCIUM
  5. BIOTIN [Concomitant]
     Active Substance: BIOTIN
  6. VITAMIN D NOS [Concomitant]
     Active Substance: VITAMIN D NOS
  7. FOLIC ACID [Concomitant]
     Active Substance: FOLIC ACID
  8. MAGNESIUM [Concomitant]
     Active Substance: MAGNESIUM
  9. BENGAY GREASELESS [Concomitant]
     Active Substance: MENTHOL\METHYL SALICYLATE

REACTIONS (1)
  - Rheumatoid arthritis [Recovered/Resolved]

NARRATIVE: CASE EVENT DATE: 20220601
